FAERS Safety Report 8619126-1 (Version None)
Quarter: 2012Q3

REPORT INFORMATION
  Report Type: 
  Country: None (occurrence: None)
  Receive Date: 20120824
  Receipt Date: 20120823
  Transmission Date: 20120928
  Serious: Yes (Death, Other)
  Sender: FDA-Public Use
  Company Number: PHHY2012IN072102

PATIENT
  Age: 30 Year
  Sex: Male

DRUGS (2)
  1. TASIGNA [Suspect]
     Indication: CHRONIC MYELOID LEUKAEMIA
     Dosage: 400 MG, BID
     Route: 048
     Dates: start: 20120315, end: 20120426
  2. SPRYCEL [Suspect]

REACTIONS (5)
  - DRUG INEFFECTIVE [None]
  - DEATH [None]
  - PLATELET COUNT DECREASED [None]
  - NERVOUS SYSTEM DISORDER [None]
  - PYREXIA [None]
